FAERS Safety Report 13829810 (Version 2)
Quarter: 2021Q1

REPORT INFORMATION
  Report Type: Report from Study
  Country: CR (occurrence: CR)
  Receive Date: 20170803
  Receipt Date: 20210115
  Transmission Date: 20210419
  Serious: Yes (Other)
  Sender: FDA-Public Use
  Company Number: PHHY2017CR112929

PATIENT
  Age: 54 Year
  Sex: Female

DRUGS (1)
  1. DIOVAN [Suspect]
     Active Substance: VALSARTAN
     Indication: BLOOD PRESSURE MEASUREMENT
     Dosage: 80 MG (START DATE 6 YEARS AGO)
     Route: 065

REACTIONS (3)
  - Amyotrophic lateral sclerosis [Unknown]
  - Aphasia [Unknown]
  - Depression [Unknown]
